FAERS Safety Report 13166943 (Version 1)
Quarter: 2017Q1

REPORT INFORMATION
  Report Type: Spontaneous
  Country: GB (occurrence: GB)
  Receive Date: 20170131
  Receipt Date: 20170131
  Transmission Date: 20170428
  Serious: Yes (Other)
  Sender: FDA-Public Use
  Company Number: PHFR2017GB000757

PATIENT
  Sex: Female

DRUGS (1)
  1. SECUKINUMAB [Suspect]
     Active Substance: SECUKINUMAB
     Indication: PSORIASIS
     Dosage: 300 MG, UNK
     Route: 065
     Dates: start: 20141110

REACTIONS (16)
  - Dry eye [Not Recovered/Not Resolved]
  - Rhinalgia [Unknown]
  - Diarrhoea [Unknown]
  - Pruritus [Unknown]
  - Lacrimation increased [Not Recovered/Not Resolved]
  - Eye irritation [Not Recovered/Not Resolved]
  - Nasal discomfort [Unknown]
  - Irritable bowel syndrome [Unknown]
  - Nasal congestion [Unknown]
  - Rhinorrhoea [Unknown]
  - Noninfective conjunctivitis [Recovering/Resolving]
  - Eye disorder [Not Recovered/Not Resolved]
  - Conjunctivitis [Unknown]
  - Eye discharge [Unknown]
  - Eye pain [Unknown]
  - Nasal discharge discolouration [Unknown]
